FAERS Safety Report 8062944-1 (Version None)
Quarter: 2012Q1

REPORT INFORMATION
  Report Type: 
  Country: None (occurrence: None)
  Receive Date: 20120123
  Receipt Date: 20120123
  Transmission Date: 20120608
  Serious: Yes (Other)
  Sender: FDA-Public Use
  Company Number: None

PATIENT
  Sex: Female
  Weight: 61.234 kg

DRUGS (1)
  1. CHANTIX [Suspect]
     Indication: SMOKING CESSATION THERAPY
     Dosage: AS DIRECTED
     Dates: start: 20090701, end: 20090730

REACTIONS (14)
  - ANGER [None]
  - ABNORMAL DREAMS [None]
  - FEAR [None]
  - ANXIETY [None]
  - ACTIVITIES OF DAILY LIVING IMPAIRED [None]
  - VOMITING [None]
  - FEELING OF DESPAIR [None]
  - IMPAIRED WORK ABILITY [None]
  - EMOTIONAL DISORDER [None]
  - MENTAL DISORDER [None]
  - ABNORMAL BEHAVIOUR [None]
  - INSOMNIA [None]
  - SUICIDAL IDEATION [None]
  - ANHEDONIA [None]
